FAERS Safety Report 7012158-9 (Version None)
Quarter: 2010Q3

REPORT INFORMATION
  Report Type: 
  Country: None (occurrence: None)
  Receive Date: 20100913
  Receipt Date: 20100714
  Transmission Date: 20110219
  Serious: Yes (Life-Threatening)
  Sender: FDA-Public Use
  Company Number: AUR-APL-2010-01763 (1)

PATIENT
  Age: 35 Year
  Sex: Male
  Weight: 81.63 kg

DRUGS (5)
  1. TRIMETHOPRIM + SULFAMETHOXAZOLE [Suspect]
     Dates: start: 20100610, end: 20100612
  2. LISINOPRIL [Concomitant]
  3. MULTI-VITAMINS [Concomitant]
  4. IBUPROFEN [Concomitant]
  5. RIFABUTIN [Suspect]
     Dates: start: 20100610, end: 20100612

REACTIONS (1)
  - DRUG HYPERSENSITIVITY [None]
